FAERS Safety Report 8378513-X (Version None)
Quarter: 2012Q2

REPORT INFORMATION
  Report Type: 
  Country: None (occurrence: None)
  Receive Date: 20120522
  Receipt Date: 20120515
  Transmission Date: 20120825
  Serious: Yes (Hospitalization)
  Sender: FDA-Public Use
  Company Number: US-TEVA-338963USA

PATIENT
  Age: 71 Year
  Sex: Female

DRUGS (1)
  1. TREANDA [Suspect]
     Route: 042

REACTIONS (5)
  - MYOCARDIAL INFARCTION [None]
  - ANAEMIA [None]
  - TUMOUR LYSIS SYNDROME [None]
  - ATRIAL FIBRILLATION [None]
  - DYSPNOEA [None]
